FAERS Safety Report 23044605 (Version 2)
Quarter: 2024Q1

REPORT INFORMATION
  Report Type: Spontaneous
  Country: US (occurrence: US)
  Receive Date: 20231009
  Receipt Date: 20240104
  Transmission Date: 20240410
  Serious: No
  Sender: FDA-Public Use
  Company Number: US-BEH-2023163957

PATIENT
  Sex: Female

DRUGS (11)
  1. HIZENTRA [Suspect]
     Active Substance: HUMAN IMMUNOGLOBULIN G
     Indication: Immunodeficiency
     Dosage: 12 GRAM, QW
     Route: 058
     Dates: start: 202309
  2. HIZENTRA [Suspect]
     Active Substance: HUMAN IMMUNOGLOBULIN G
     Dosage: UNK
     Route: 058
  3. HIZENTRA [Suspect]
     Active Substance: HUMAN IMMUNOGLOBULIN G
     Dosage: UNK
     Route: 058
  4. AIMOVIG [Concomitant]
     Active Substance: ERENUMAB-AOOE
  5. PERCOCET [Concomitant]
     Active Substance: ACETAMINOPHEN\OXYCODONE HYDROCHLORIDE
  6. CALCIUM\VITAMIN D [Concomitant]
     Active Substance: CALCIUM\VITAMIN D
  7. VITAMINS [Concomitant]
     Active Substance: VITAMINS
  8. IRON [Concomitant]
     Active Substance: IRON
  9. VITAMIN B12 [Concomitant]
     Active Substance: CYANOCOBALAMIN
  10. VITAMIN D NOS [Concomitant]
     Active Substance: VITAMIN D NOS
  11. EFFEXOR [Concomitant]
     Active Substance: VENLAFAXINE HYDROCHLORIDE

REACTIONS (4)
  - Headache [Unknown]
  - Infusion site pain [Unknown]
  - Infusion site bruising [Unknown]
  - Headache [Recovered/Resolved]
